FAERS Safety Report 4766464-9 (Version None)
Quarter: 2005Q3

REPORT INFORMATION
  Report Type: 
  Country: None (occurrence: None)
  Receive Date: 20050912
  Receipt Date: 20041012
  Transmission Date: 20060218
  Serious: Yes (Hospitalization)
  Sender: FDA-Public Use
  Company Number: US-ROCHE-383207

PATIENT
  Age: 46 Year
  Sex: Female
  Weight: 113.4 kg

DRUGS (11)
  1. PEGASYS [Suspect]
     Indication: HEPATITIS C
     Route: 058
     Dates: start: 20040412, end: 20041001
  2. COPEGUS [Suspect]
     Indication: HEPATITIS C
     Dosage: 200MG BID AM, 200 MG BID PM
     Route: 048
     Dates: start: 20040412, end: 20041001
  3. NEXIUM [Concomitant]
     Route: 048
  4. AZMACORT [Concomitant]
     Indication: ASTHMA
     Route: 055
  5. ALBUTEROL [Concomitant]
     Indication: ASTHMA
     Route: 055
  6. CONTRACEPTIVE PILL NOS [Concomitant]
     Dosage: WERE DISCONTINUED APPROCIAMATELY ONE MONTH BEFORE THE DEVELOPMENT OF PULMONARY EMBOLISM.
     Route: 048
     Dates: end: 20040915
  7. ANTICOAGULANTS NOS [Concomitant]
     Dosage: RECENTLY COMPLETED.
  8. FOLIC ACID [Concomitant]
     Dosage: IS CURRENTLY TAKING.
  9. ECHINACEA [Concomitant]
  10. FISH OIL [Concomitant]
  11. GINKGO BILOBA [Concomitant]

REACTIONS (9)
  - ABDOMINAL PAIN UPPER [None]
  - ASTHENIA [None]
  - CHEST PAIN [None]
  - DYSPNOEA [None]
  - OVERWEIGHT [None]
  - PULMONARY EMBOLISM [None]
  - SINUSITIS [None]
  - THROMBOPHLEBITIS [None]
  - VOMITING [None]
